FAERS Safety Report 6743877-7 (Version None)
Quarter: 2010Q2

REPORT INFORMATION
  Report Type: 
  Country: None (occurrence: None)
  Receive Date: 20100527
  Receipt Date: 20100406
  Transmission Date: 20101027
  Serious: No
  Sender: FDA-Public Use
  Company Number: US-KINGPHARMUSA00001-K201000423

PATIENT
  Age: 90 Year
  Sex: Female
  Weight: 62.132 kg

DRUGS (5)
  1. FLECTOR [Suspect]
     Indication: PAIN
     Dosage: UNK PATCH, UNK
     Route: 061
     Dates: start: 20100317, end: 20100101
  2. FLECTOR [Suspect]
     Indication: BACK PAIN
  3. ATENOLOL [Concomitant]
     Indication: HYPERTENSION
  4. NIFEDIPINE [Concomitant]
     Indication: HYPERTENSION
  5. TRAZODONE HCL [Concomitant]
     Indication: SLEEP DISORDER

REACTIONS (1)
  - DRUG INEFFECTIVE [None]
